FAERS Safety Report 9036721 (Version 1)
Quarter: 2013Q1

REPORT INFORMATION
  Report Type: Spontaneous
  Country: GB (occurrence: None)
  Receive Date: 20130114
  Receipt Date: 20130114
  Transmission Date: 20140127
  Serious: Yes (Death)
  Sender: FDA-Public Use
  Company Number: TPA2013A00625

PATIENT
  Age: 83 Year
  Sex: Male

DRUGS (11)
  1. FEBUXOSTAT [Suspect]
     Indication: GOUT
     Route: 048
     Dates: start: 20121128, end: 20121210
  2. BISOPROLOL (BISOPROLOL) [Concomitant]
  3. CITALOPRAM (CITALOPRAM) [Concomitant]
  4. CO-CODAMOL (CODEINE PHOSPHATE, PARACETAMOL) [Concomitant]
  5. COLCHICINE (COLCHICINE) [Concomitant]
  6. DIGOXIN (DIGOXIN) [Concomitant]
  7. FUROSEMIDE (FUROSEMIDE) [Concomitant]
  8. INSULIN (INSULIN) [Concomitant]
  9. RAMIPRIL (RAMIPRIL) [Concomitant]
  10. SAXAGLIPTIN (SAXAGLIPTIN) [Concomitant]
  11. SIMVASTATIN (SIMVASTATIN) [Concomitant]

REACTIONS (5)
  - Cardiac failure [None]
  - Poor quality sleep [None]
  - Renal failure [None]
  - Restlessness [None]
  - Pruritus [None]
